FAERS Safety Report 6180318-5 (Version None)
Quarter: 2009Q2

REPORT INFORMATION
  Report Type: 
  Country: None (occurrence: None)
  Receive Date: 20090504
  Receipt Date: 20090504
  Transmission Date: 20091009
  Serious: Yes (Other)
  Sender: FDA-Public Use
  Company Number: None

PATIENT
  Age: 60 Year
  Sex: Male
  Weight: 81.4 kg

DRUGS (2)
  1. DOCETAXEL [Suspect]
     Indication: CHEMOTHERAPY
     Dosage: 150 MG ONCE IV
     Route: 042
     Dates: start: 20090427, end: 20090427
  2. CARBOPLATIN [Suspect]
     Indication: CHEMOTHERAPY
     Dosage: 400 MG ONCE IV
     Route: 042
     Dates: start: 20090427, end: 20090427

REACTIONS (6)
  - BLOOD PRESSURE INCREASED [None]
  - CHEST DISCOMFORT [None]
  - CONVULSION [None]
  - HEADACHE [None]
  - HEART RATE INCREASED [None]
  - PALPITATIONS [None]
